FAERS Safety Report 5638872-5 (Version None)
Quarter: 2008Q1

REPORT INFORMATION
  Report Type: 
  Country: None (occurrence: None)
  Receive Date: 20080226
  Receipt Date: 20080215
  Transmission Date: 20080703
  Serious: Yes (Other)
  Sender: FDA-Public Use
  Company Number: JP-ROCHE-548469

PATIENT
  Age: 57 Year
  Sex: Male

DRUGS (1)
  1. ROCEPHIN [Suspect]
     Indication: DRUG USE FOR UNKNOWN INDICATION
     Dosage: ROUTE: INTRAVENOUS (NOS).
     Route: 042
     Dates: start: 20060301, end: 20060301

REACTIONS (2)
  - AGRANULOCYTOSIS [None]
  - OCULOMUCOCUTANEOUS SYNDROME [None]
